FAERS Safety Report 11249815 (Version 1)
Quarter: 2015Q3

REPORT INFORMATION
  Report Type: Spontaneous
  Country: US (occurrence: US)
  Receive Date: 20150708
  Receipt Date: 20150708
  Transmission Date: 20151125
  Serious: Yes (Hospitalization)
  Sender: FDA-Public Use
  Company Number: US-ELI_LILLY_AND_COMPANY-US201008001483

PATIENT
  Age: 44 Year
  Sex: Female

DRUGS (6)
  1. GEMZAR [Suspect]
     Active Substance: GEMCITABINE HYDROCHLORIDE
     Indication: BREAST CANCER METASTATIC
  2. COUMADIN [Concomitant]
     Active Substance: WARFARIN SODIUM
  3. GEMZAR [Suspect]
     Active Substance: GEMCITABINE HYDROCHLORIDE
     Dosage: 600 MG, UNK
     Dates: start: 20100802, end: 20100802
  4. AVASTIN [Concomitant]
     Active Substance: BEVACIZUMAB
     Dosage: UNK, UNKNOWN
  5. CARBOPLATIN. [Concomitant]
     Active Substance: CARBOPLATIN
  6. AVASTIN [Concomitant]
     Active Substance: BEVACIZUMAB
     Dosage: 15 MG, UNK

REACTIONS (1)
  - Platelet count decreased [Unknown]
